FAERS Safety Report 12808868 (Version 1)
Quarter: 2016Q4

REPORT INFORMATION
  Report Type: Spontaneous
  Country: GB (occurrence: GB)
  Receive Date: 20161004
  Receipt Date: 20161004
  Transmission Date: 20170207
  Serious: Yes (Other)
  Sender: FDA-Public Use
  Company Number: GB-BAYER-2016-185124

PATIENT
  Sex: Male

DRUGS (1)
  1. GADOVIST 1.0 MMOL/ML SOLUTION FOR INJECTION [Suspect]
     Active Substance: GADOBUTROL
     Indication: SCAN WITH CONTRAST
     Dosage: UNK UNK, ONCE
     Dates: start: 201609, end: 201609

REACTIONS (9)
  - Tremor [None]
  - Muscle twitching [None]
  - Paraesthesia [None]
  - Malaise [None]
  - Musculoskeletal stiffness [None]
  - Fatigue [None]
  - Dysstasia [None]
  - Myalgia [None]
  - Dizziness [None]

NARRATIVE: CASE EVENT DATE: 201609
